FAERS Safety Report 8420763-8 (Version None)
Quarter: 2012Q2

REPORT INFORMATION
  Report Type: 
  Country: None (occurrence: None)
  Receive Date: 20120608
  Receipt Date: 20120605
  Transmission Date: 20120825
  Serious: No
  Sender: FDA-Public Use
  Company Number: US-PFIZER INC-2012135874

PATIENT
  Sex: Female
  Weight: 68.027 kg

DRUGS (2)
  1. TEKTURNA [Concomitant]
     Indication: HYPERTENSION
     Dosage: 300 MG, DAILY
     Route: 048
  2. NEURONTIN [Suspect]
     Indication: DIABETIC NEUROPATHY
     Dosage: 100 MG, 3X/DAY
     Route: 048

REACTIONS (1)
  - DRUG INEFFECTIVE [None]
